FAERS Safety Report 10654626 (Version 1)
Quarter: 2014Q4

REPORT INFORMATION
  Report Type: Spontaneous
  Country: US (occurrence: US)
  Receive Date: 20141216
  Receipt Date: 20141216
  Transmission Date: 20150529
  Serious: No
  Sender: FDA-Public Use
  Company Number: US-PFIZER INC-2014340182

PATIENT
  Age: 19 Year
  Sex: Female

DRUGS (2)
  1. EMERGEN-C [Suspect]
     Active Substance: VITAMINS
     Dosage: SPOONFUL, UNK
     Dates: start: 20141207
  2. ZITHROMAX [Suspect]
     Active Substance: AZITHROMYCIN DIHYDRATE
     Indication: SINUSITIS
     Dosage: UNK

REACTIONS (10)
  - Nausea [Not Recovered/Not Resolved]
  - Head discomfort [Recovering/Resolving]
  - Hyperhidrosis [Recovering/Resolving]
  - Chest discomfort [Not Recovered/Not Resolved]
  - Chills [Not Recovered/Not Resolved]
  - Malaise [Not Recovered/Not Resolved]
  - Peripheral coldness [Not Recovered/Not Resolved]
  - Presyncope [Recovering/Resolving]
  - Feeling hot [Recovering/Resolving]
  - Cold sweat [Not Recovered/Not Resolved]

NARRATIVE: CASE EVENT DATE: 20141207
